FAERS Safety Report 19494230 (Version 4)
Quarter: 2021Q4

REPORT INFORMATION
  Report Type: Spontaneous
  Country: US (occurrence: US)
  Receive Date: 20210706
  Receipt Date: 20211208
  Transmission Date: 20220304
  Serious: Yes (Hospitalization)
  Sender: FDA-Public Use
  Company Number: US-STRONGBRIDGE BIOPHARMA-2021-STR-000237

PATIENT
  Age: 26 Year
  Sex: Female

DRUGS (4)
  1. KEVEYIS [Suspect]
     Active Substance: DICHLORPHENAMIDE
     Indication: Familial periodic paralysis
     Dosage: 50 MG, BID
     Route: 048
     Dates: start: 20210127
  2. KEVEYIS [Suspect]
     Active Substance: DICHLORPHENAMIDE
     Dosage: 50 MG, BID
     Route: 048
  3. KEVEYIS [Suspect]
     Active Substance: DICHLORPHENAMIDE
     Dosage: 100 MG, BID
     Route: 048
  4. KEVEYIS [Suspect]
     Active Substance: DICHLORPHENAMIDE
     Dosage: 100 MG, BID
     Route: 048

REACTIONS (8)
  - Disease recurrence [Unknown]
  - Disease recurrence [Unknown]
  - Neck injury [Recovering/Resolving]
  - Enteral nutrition [Recovering/Resolving]
  - Malnutrition [Recovering/Resolving]
  - Muscular weakness [Recovering/Resolving]
  - Muscular weakness [Unknown]
  - Disease progression [Unknown]

NARRATIVE: CASE EVENT DATE: 20210628
